FAERS Safety Report 5713833-6 (Version None)
Quarter: 2008Q2

REPORT INFORMATION
  Report Type: 
  Country: None (occurrence: None)
  Receive Date: 20080421
  Receipt Date: 20080404
  Transmission Date: 20081010
  Serious: Yes (Other)
  Sender: FDA-Public Use
  Company Number: 025894

PATIENT
  Age: 23 Year
  Sex: Male

DRUGS (5)
  1. CLARAVIS [Suspect]
     Indication: ACNE
     Dosage: 40 MG, QD, ORAL
     Route: 048
     Dates: start: 20080122, end: 20080404
  2. CLARAVIS [Suspect]
     Indication: ACNE
     Dosage: 40 MG, QD, ORAL
     Route: 048
     Dates: start: 20071221
  3. PHENYTOIN SODIUM [Suspect]
     Dosage: UNK, UNK, ORAL
     Route: 048
  4. CLARAVIS [Suspect]
     Dosage: 40 MG, BID, ORAL
     Route: 048
     Dates: start: 20080122, end: 20080404
  5. PHENYTOIN SODIUM [Suspect]
     Dosage: UNK, UNK, ORAL
     Route: 048

REACTIONS (2)
  - CONVULSION [None]
  - DRUG INTERACTION [None]
